FAERS Safety Report 8861494 (Version 1)
Quarter: 2012Q4

REPORT INFORMATION
  Report Type: 
  Country: US (occurrence: US)
  Receive Date: 20121025
  Receipt Date: 20121025
  Transmission Date: 20130627
  Serious: No
  Sender: FDA-Public Use
  Company Number: US-AMGEN-USASP2012014748

PATIENT
  Age: 44 Year
  Sex: Female
  Weight: 97.51 kg

DRUGS (9)
  1. ENBREL [Suspect]
     Indication: PRODUCT USED FOR UNKNOWN INDICATION
     Dosage: 50 mg, qwk
     Route: 058
  2. LISINOPRIL [Concomitant]
     Dosage: 10 mg, UNK
  3. VITAMIN D /00107901/ [Concomitant]
     Dosage: 1000 IU, UNK
  4. FELDENE [Concomitant]
     Dosage: 10 mg, UNK
  5. METOTREXATE [Concomitant]
     Dosage: 2.5 mg, UNK
  6. VALTREX [Concomitant]
     Dosage: 1 g, UNK
  7. CAMILA [Concomitant]
     Dosage: 0.35 mg, UNK
  8. MULTIVITAMIN                       /00097801/ [Concomitant]
  9. MOTRIN IB [Concomitant]
     Dosage: 200 mg, UNK

REACTIONS (1)
  - Nasopharyngitis [Unknown]
